APPROVED DRUG PRODUCT: PRILOSEC
Active Ingredient: OMEPRAZOLE MAGNESIUM
Strength: EQ 2.5MG BASE/PACKET
Dosage Form/Route: FOR SUSPENSION, DELAYED RELEASE;ORAL
Application: N022056 | Product #001
Applicant: COVIS PHARMA GMBH
Approved: Mar 20, 2008 | RLD: Yes | RS: No | Type: RX